FAERS Safety Report 6916766-2 (Version None)
Quarter: 2010Q3

REPORT INFORMATION
  Report Type: 
  Country: None (occurrence: None)
  Receive Date: 20100810
  Receipt Date: 20100720
  Transmission Date: 20110219
  Serious: Yes (Hospitalization)
  Sender: FDA-Public Use
  Company Number: FR-PFIZER INC-2010086457

PATIENT
  Age: 56 Year
  Sex: Female
  Weight: 108 kg

DRUGS (10)
  1. ATARAX [Suspect]
     Indication: PSYCHOTIC DISORDER
     Dosage: 50 MG, DAILY
     Route: 048
     Dates: start: 20100201, end: 20100609
  2. ATARAX [Suspect]
     Dosage: LESS THAN 50 MG, 25 MG TABLET
     Route: 048
     Dates: start: 20100610
  3. RISPERIDONE [Suspect]
     Indication: PSYCHOTIC DISORDER
     Dosage: 37.5MG/2ML POWDER AND INJECTABLE SOLUTION SLOW RELEASE, 1 UNIT EACH 2 WEEKS.
     Route: 030
     Dates: start: 20100215, end: 20100612
  4. AMLOR [Concomitant]
     Dosage: 10 MG, 1X/DAY, 1 CAPSULE/DAY
     Dates: start: 20100311
  5. ALDACTONE [Concomitant]
     Dosage: 50 MG, 1X/DAY, 1 TABLET/DAY
     Dates: start: 20100311
  6. VITAMIN B1 TAB [Concomitant]
     Dosage: DOSAGE WAS 1 TABLET
  7. VITAMIN B6 [Concomitant]
  8. AOTAL [Concomitant]
     Dosage: DOSAGE WAS 2 TABLETS TWICE A DAY
     Dates: start: 20100301
  9. ESCITALOPRAM OXALATE [Concomitant]
     Dosage: 10 MG, UNK
     Dates: start: 20100215
  10. LERCAN [Concomitant]

REACTIONS (2)
  - NEUTROPENIA [None]
  - THROMBOCYTOPENIA [None]
